FAERS Safety Report 11660077 (Version 2)
Quarter: 2016Q1

REPORT INFORMATION
  Report Type: Report from Study
  Country: US (occurrence: US)
  Receive Date: 20151026
  Receipt Date: 20160120
  Transmission Date: 20160525
  Serious: Yes (Hospitalization, Other)
  Sender: FDA-Public Use
  Company Number: US-AMGEN-USASL2015109958

PATIENT
  Age: 59 Year
  Sex: Female

DRUGS (1)
  1. ENBREL [Suspect]
     Active Substance: ETANERCEPT
     Indication: RHEUMATOID ARTHRITIS
     Dosage: 50 MG, UNK
     Route: 065
     Dates: start: 20130101

REACTIONS (6)
  - Bladder operation [Recovered/Resolved]
  - Infection [Unknown]
  - Colon operation [Recovered/Resolved]
  - Surgery [Unknown]
  - Dysstasia [Unknown]
  - Abasia [Unknown]

NARRATIVE: CASE EVENT DATE: 2015
